FAERS Safety Report 16228683 (Version 1)
Quarter: 2019Q2

REPORT INFORMATION
  Report Type: Spontaneous
  Country: US (occurrence: US)
  Receive Date: 20190423
  Receipt Date: 20190423
  Transmission Date: 20190711
  Serious: Yes (Other)
  Sender: FDA-Public Use
  Company Number: US-ABBVIE-19P-163-2710965-00

PATIENT
  Age: 30 Year
  Sex: Female
  Weight: 65.83 kg

DRUGS (1)
  1. ORILISSA [Suspect]
     Active Substance: ELAGOLIX SODIUM
     Indication: ENDOMETRIOSIS
     Route: 048
     Dates: start: 201810, end: 20190317

REACTIONS (8)
  - Anxiety [Recovering/Resolving]
  - Mood swings [Recovering/Resolving]
  - Insomnia [Not Recovered/Not Resolved]
  - Suicidal ideation [Recovered/Resolved]
  - Personality change [Not Recovered/Not Resolved]
  - Hot flush [Recovering/Resolving]
  - Night sweats [Recovering/Resolving]
  - Aggression [Not Recovered/Not Resolved]

NARRATIVE: CASE EVENT DATE: 201811
